FAERS Safety Report 10708515 (Version 3)
Quarter: 2015Q1

REPORT INFORMATION
  Report Type: Spontaneous
  Country: US (occurrence: US)
  Receive Date: 20150113
  Receipt Date: 20150120
  Transmission Date: 20150721
  Serious: Yes (Hospitalization)
  Sender: FDA-Public Use
  Company Number: US-GILEAD-2015-0131755

PATIENT
  Age: 52 Year
  Sex: Female

DRUGS (5)
  1. LETAIRIS [Suspect]
     Active Substance: AMBRISENTAN
     Indication: PRODUCT USED FOR UNKNOWN INDICATION
     Dosage: 10 MG, QD
     Route: 065
     Dates: start: 20140324
  2. COUMADIN [Concomitant]
     Active Substance: WARFARIN SODIUM
  3. REMODULIN [Concomitant]
     Active Substance: TREPROSTINIL
     Route: 058
  4. ORENITRAM [Concomitant]
     Active Substance: TREPROSTINIL
  5. ADEMPAS [Concomitant]
     Active Substance: RIOCIGUAT

REACTIONS (2)
  - International normalised ratio increased [Unknown]
  - Malaise [Unknown]
